FAERS Safety Report 10818066 (Version 1)
Quarter: 2015Q1

REPORT INFORMATION
  Report Type: Spontaneous
  Country: US (occurrence: US)
  Receive Date: 20150218
  Receipt Date: 20150218
  Transmission Date: 20150721
  Serious: Yes (Other)
  Sender: FDA-Public Use
  Company Number: US-BAYER-2015-020926

PATIENT
  Age: 78 Year
  Sex: Male
  Weight: 87.75 kg

DRUGS (1)
  1. BAYER LOW DOSE [Suspect]
     Active Substance: ASPIRIN
     Indication: ISCHAEMIC HEART DISEASE PROPHYLAXIS
     Dosage: 1 DF, QD
     Route: 048
     Dates: start: 2012, end: 20150202

REACTIONS (3)
  - Internal haemorrhage [Not Recovered/Not Resolved]
  - Drug interaction [None]
  - Dizziness [Unknown]

NARRATIVE: CASE EVENT DATE: 201502
